FAERS Safety Report 19849966 (Version 1)
Quarter: 2021Q3

REPORT INFORMATION
  Report Type: Spontaneous
  Country: GB (occurrence: GB)
  Receive Date: 20210917
  Receipt Date: 20210917
  Transmission Date: 20211014
  Serious: Yes (Other)
  Sender: FDA-Public Use
  Company Number: GB-ALLERGAN-2132315US

PATIENT
  Sex: Female
  Weight: 59.87 kg

DRUGS (1)
  1. GANFORT [Suspect]
     Active Substance: BIMATOPROST\TIMOLOL
     Indication: GLAUCOMA
     Dosage: 2 GTT, QHS
     Route: 047
     Dates: start: 20210422, end: 20210524

REACTIONS (9)
  - Hypertension [Recovered/Resolved]
  - Alopecia [Not Recovered/Not Resolved]
  - Eye pain [Recovered/Resolved]
  - Heart rate irregular [Recovered/Resolved]
  - Headache [Recovered/Resolved]
  - Depression [Not Recovered/Not Resolved]
  - Medication error [Unknown]
  - Fatigue [Recovered/Resolved]
  - Somnolence [Not Recovered/Not Resolved]

NARRATIVE: CASE EVENT DATE: 20210429
